FAERS Safety Report 22797417 (Version 3)
Quarter: 2023Q4

REPORT INFORMATION
  Report Type: Spontaneous
  Country: US (occurrence: US)
  Receive Date: 20230808
  Receipt Date: 20231208
  Transmission Date: 20240109
  Serious: No
  Sender: FDA-Public Use
  Company Number: US-SA-SAC20230807000561

PATIENT
  Age: 65 Year
  Sex: Female

DRUGS (1)
  1. DUPIXENT [Suspect]
     Active Substance: DUPILUMAB
     Indication: Dermatitis atopic
     Dosage: 300 MG, QOW
     Route: 058

REACTIONS (7)
  - Diarrhoea [Unknown]
  - Pain in extremity [Unknown]
  - Visual impairment [Unknown]
  - Abdominal pain upper [Unknown]
  - Dry eye [Unknown]
  - Myalgia [Recovered/Resolved]
  - Eye pruritus [Unknown]
